FAERS Safety Report 8392018-1 (Version None)
Quarter: 2012Q2

REPORT INFORMATION
  Report Type: 
  Country: None (occurrence: None)
  Receive Date: 20120529
  Receipt Date: 20120523
  Transmission Date: 20120825
  Serious: Yes (Other)
  Sender: FDA-Public Use
  Company Number: AT-ROCHE-1071782

PATIENT
  Age: 70 Year
  Sex: Female
  Weight: 52 kg

DRUGS (1)
  1. XELODA [Suspect]
     Indication: CHEMOTHERAPY
     Dates: start: 20120301, end: 20120502

REACTIONS (3)
  - THROMBOCYTOPENIA [None]
  - BLISTER [None]
  - ERYTHEMA [None]
